FAERS Safety Report 6737907-6 (Version None)
Quarter: 2010Q2

REPORT INFORMATION
  Report Type: 
  Country: None (occurrence: None)
  Receive Date: 20100524
  Receipt Date: 20100517
  Transmission Date: 20101027
  Serious: Yes (Death)
  Sender: FDA-Public Use
  Company Number: PHHY2010AT31691

PATIENT
  Age: 71 Year
  Sex: Female

DRUGS (7)
  1. ALISKIREN ALI+ [Suspect]
     Indication: HYPERTENSION
     Dosage: 300 MG (1-0-0) DAILY
     Dates: start: 20090707
  2. ALISKIREN ALI+ [Suspect]
     Dosage: 150 MG DAILY
     Dates: start: 20090721
  3. LISINOPRIL [Suspect]
     Indication: HYPERTENSION
     Dosage: 20 MG (1-0-0)
     Dates: start: 20081201
  4. OXYCONTIN [Suspect]
     Indication: PAIN
     Dosage: 20 MG (1-0-1)
     Dates: start: 20090201
  5. OMEC [Suspect]
     Indication: GASTRIC DISORDER
     Dosage: 40 MG (1-0-0)
  6. RIFAXIMIN [Suspect]
     Indication: DIARRHOEA
     Dosage: 200 MG (2-0-2)
  7. RAMIPRIL [Concomitant]
     Dosage: 10 MG IN THE EVENING
     Dates: start: 20091005

REACTIONS (2)
  - CEREBRAL HAEMORRHAGE [None]
  - NOCTURIA [None]
